FAERS Safety Report 7752886-0 (Version None)
Quarter: 2011Q3

REPORT INFORMATION
  Report Type: 
  Country: None (occurrence: None)
  Receive Date: 20110915
  Receipt Date: 20110909
  Transmission Date: 20111222
  Serious: Yes (Death, Hospitalization, Other)
  Sender: FDA-Public Use
  Company Number: PHHY2011JP77827

PATIENT
  Age: 64 Year
  Sex: Male
  Weight: 65 kg

DRUGS (15)
  1. NEORAL [Suspect]
     Dosage: 50MG,DAILY
     Route: 048
     Dates: start: 20070101, end: 20070101
  2. NEORAL [Suspect]
     Dosage: 200 MG, UNK
  3. PREDNISOLONE [Concomitant]
     Indication: COLITIS ULCERATIVE
     Dosage: 45 MG, DAILY
     Route: 048
  4. AZATHIOPRINE [Concomitant]
     Dosage: 2 G, UNK
  5. SANDIMMUNE [Suspect]
     Dosage: 2 MG, DAILY
     Route: 042
  6. GANCICLOVIR [Concomitant]
     Indication: CYTOMEGALOVIRUS TEST POSITIVE
  7. PREDNISOLONE [Concomitant]
     Dosage: 20 MG, DAILY
     Route: 048
  8. NEORAL [Suspect]
     Indication: COLITIS ULCERATIVE
     Dosage: 80 MG,DAILY
     Route: 048
     Dates: start: 20070101, end: 20070101
  9. SANDIMMUNE [Suspect]
     Dosage: 2 MG, DAILY
     Route: 042
  10. IMURAN [Suspect]
     Indication: COLITIS ULCERATIVE
     Dosage: 100 MG, DAILY
     Route: 048
  11. SANDIMMUNE [Suspect]
     Indication: COLITIS ULCERATIVE
     Dosage: 2 MG, DAILY
     Route: 042
  12. PREDNISOLONE [Concomitant]
     Dosage: 30 MG, DAILY
     Route: 048
  13. NEORAL [Suspect]
     Dosage: 100 MG,DAILY
     Route: 048
     Dates: start: 20070101, end: 20070101
  14. PREDNISOLONE [Concomitant]
     Dosage: 15 MG, DAILY
     Route: 048
  15. PREDNISOLONE [Concomitant]
     Dosage: 5 MG, DAILY
     Route: 048

REACTIONS (12)
  - PARKINSONISM [None]
  - MYELODYSPLASTIC SYNDROME [None]
  - WHITE BLOOD CELL COUNT DECREASED [None]
  - IMMUNOSUPPRESSANT DRUG LEVEL DECREASED [None]
  - REFRACTORY ANAEMIA WITH AN EXCESS OF BLASTS [None]
  - GASTROINTESTINAL HAEMORRHAGE [None]
  - CARDIAC FAILURE [None]
  - BONE MARROW FAILURE [None]
  - RENAL FAILURE ACUTE [None]
  - PNEUMONIA ASPIRATION [None]
  - PANCYTOPENIA [None]
  - PLATELET COUNT DECREASED [None]
